FAERS Safety Report 22028871 (Version 1)
Quarter: 2023Q1

REPORT INFORMATION
  Report Type: Spontaneous
  Country: US (occurrence: None)
  Receive Date: 20230220
  Receipt Date: 20230220
  Transmission Date: 20230417
  Serious: Yes (Life-Threatening)
  Sender: FDA-Public Use
  Company Number: None

PATIENT
  Age: 19 Year
  Sex: Male
  Weight: 57.61 kg

DRUGS (1)
  1. STELARA [Suspect]
     Active Substance: USTEKINUMAB
     Route: 042
     Dates: start: 20230217

REACTIONS (4)
  - Throat tightness [None]
  - Flushing [None]
  - Pallor [None]
  - Infusion related reaction [None]

NARRATIVE: CASE EVENT DATE: 20230217
